FAERS Safety Report 18564156 (Version 1)
Quarter: 2020Q4

REPORT INFORMATION
  Report Type: Spontaneous
  Country: US (occurrence: US)
  Receive Date: 20201127
  Receipt Date: 20201127
  Transmission Date: 20210114
  Serious: Yes (Other)
  Sender: FDA-Public Use
  Company Number: None

PATIENT
  Age: 79 Year
  Sex: Female
  Weight: 90.72 kg

DRUGS (16)
  1. CETRIZINE (GENERIC ZYRTEC) [Concomitant]
  2. OXYBUTYNIN CHLORIDE ER [Concomitant]
     Active Substance: OXYBUTYNIN CHLORIDE
  3. MECLIZINE HCL [Concomitant]
     Active Substance: MECLIZINE HYDROCHLORIDE
  4. TYLENOL [Concomitant]
     Active Substance: ACETAMINOPHEN
  5. LOVASTATINE [Concomitant]
     Active Substance: LOVASTATIN
  6. CENTRUM SILVER [Concomitant]
     Active Substance: MINERALS\VITAMINS
  7. OZEMPIC [Suspect]
     Active Substance: SEMAGLUTIDE
     Indication: TYPE 2 DIABETES MELLITUS
     Route: 058
     Dates: start: 20200625, end: 20200821
  8. GLIMPIRIDE [Concomitant]
     Active Substance: GLIMEPIRIDE
  9. DICLOFENAC SODIUM. [Concomitant]
     Active Substance: DICLOFENAC SODIUM
  10. MULTIVITAMIN/MULTIMINERAL SUPPLEMENT [Concomitant]
  11. PANTOPRZOLE  SODIUM [Concomitant]
  12. CLOPIDOGREL BISULFATE. [Concomitant]
     Active Substance: CLOPIDOGREL BISULFATE
  13. COMPLETE MULTIVITAMIN ADULTS [Concomitant]
  14. GABAPENTINE [Concomitant]
     Active Substance: GABAPENTIN
  15. ATENOLO [Concomitant]
  16. FUROSEMIDE. [Concomitant]
     Active Substance: FUROSEMIDE

REACTIONS (3)
  - Urticaria [None]
  - Lip swelling [None]
  - Skin ulcer [None]

NARRATIVE: CASE EVENT DATE: 20200821
